FAERS Safety Report 8392866-8 (Version None)
Quarter: 2012Q2

REPORT INFORMATION
  Report Type: 
  Country: None (occurrence: None)
  Receive Date: 20120529
  Receipt Date: 20110622
  Transmission Date: 20120825
  Serious: No
  Sender: FDA-Public Use
  Company Number: US-MYLANLABS-2011S1010016

PATIENT
  Age: 49 Year
  Sex: Male
  Weight: 79.38 kg

DRUGS (4)
  1. ZOLPIDEM TARTRATE [Suspect]
     Route: 048
  2. ZOLPIDEM TARTRATE [Suspect]
     Indication: INSOMNIA
     Route: 048
     Dates: start: 20110505
  3. REMERON [Concomitant]
     Indication: INSOMNIA
  4. ZOLPIDEM TARTRATE [Suspect]
     Route: 048

REACTIONS (3)
  - DRUG INEFFECTIVE [None]
  - INSOMNIA [None]
  - INCORRECT DOSE ADMINISTERED [None]
